FAERS Safety Report 7604231-9 (Version None)
Quarter: 2011Q3

REPORT INFORMATION
  Report Type: 
  Country: None (occurrence: None)
  Receive Date: 20110712
  Receipt Date: 20110701
  Transmission Date: 20111222
  Serious: Yes (Hospitalization)
  Sender: FDA-Public Use
  Company Number: FR-GLAXOSMITHKLINE-B0726494A

PATIENT
  Sex: Female

DRUGS (13)
  1. ONDANSERTRON HYDROCHLORIDE [Suspect]
     Indication: PROPHYLAXIS
     Route: 065
     Dates: start: 20110422, end: 20110422
  2. MESNA [Suspect]
     Indication: PROPHYLAXIS
     Route: 065
     Dates: start: 20110422, end: 20110422
  3. LANSOPRAZOLE [Concomitant]
  4. FERROUS SULFATE + FOLIC ACID [Concomitant]
  5. LASIX [Concomitant]
     Dosage: 40MG UNKNOWN
     Route: 048
  6. AMLODIPINE [Concomitant]
  7. CYCLOPHOSPHAMIDE [Suspect]
     Indication: SYSTEMIC LUPUS ERYTHEMATOSUS
     Route: 042
     Dates: start: 20110422, end: 20110422
  8. FOLIC ACID [Concomitant]
     Route: 048
  9. CORTICOIDS [Concomitant]
     Route: 065
     Dates: start: 20110407, end: 20110407
  10. BISOPROLOL FUMARATE [Concomitant]
     Dosage: 10MG UNKNOWN
     Route: 048
  11. SODIUM BICARBONATE [Concomitant]
     Indication: PRODUCT USED FOR UNKNOWN INDICATION
     Dosage: 1UNIT CYCLIC
     Route: 048
     Dates: start: 20110422, end: 20110422
  12. RAMIPRIL [Concomitant]
     Dosage: 10MG UNKNOWN
     Route: 065
  13. CALCIUM + COLECALCIFEROL [Concomitant]
     Dosage: 1000MG UNKNOWN
     Route: 048

REACTIONS (3)
  - PYREXIA [None]
  - ARTHRALGIA [None]
  - ERYTHEMA [None]
